FAERS Safety Report 5232692-1 (Version None)
Quarter: 2007Q1

REPORT INFORMATION
  Report Type: 
  Country: None (occurrence: None)
  Receive Date: 20070206
  Receipt Date: 20070206
  Transmission Date: 20070707
  Serious: Yes (Other)
  Sender: FDA-Public Use
  Company Number: None

PATIENT
  Age: 9 Year
  Sex: Female
  Weight: 22.9 kg

DRUGS (1)
  1. ISONIAZID [Suspect]
     Indication: TUBERCULOSIS SKIN TEST POSITIVE
     Dosage: 250 MG  DAILY  PO
     Route: 048
     Dates: start: 20060715, end: 20070104

REACTIONS (5)
  - ABDOMINAL PAIN UPPER [None]
  - HEADACHE [None]
  - HEPATOTOXICITY [None]
  - JAUNDICE [None]
  - VOMITING [None]
